FAERS Safety Report 6511418-5 (Version None)
Quarter: 2009Q4

REPORT INFORMATION
  Report Type: 
  Country: None (occurrence: None)
  Receive Date: 20091222
  Receipt Date: 20090417
  Transmission Date: 20100525
  Serious: No
  Sender: FDA-Public Use
  Company Number: US-ASTRAZENECA-2009UW06583

PATIENT
  Age: 28086 Day
  Sex: Female
  Weight: 58.1 kg

DRUGS (2)
  1. CRESTOR [Suspect]
     Indication: HYPERLIPIDAEMIA
     Route: 048
     Dates: start: 20090311, end: 20090327
  2. CRESTOR [Suspect]
     Route: 048
     Dates: start: 20090328

REACTIONS (5)
  - DIARRHOEA [None]
  - HEADACHE [None]
  - MUSCLE SPASMS [None]
  - NAUSEA [None]
  - VOMITING [None]
